FAERS Safety Report 11303170 (Version 1)
Quarter: 2015Q3

REPORT INFORMATION
  Report Type: Spontaneous
  Country: TR (occurrence: TR)
  Receive Date: 20150723
  Receipt Date: 20150723
  Transmission Date: 20151125
  Serious: Yes (Other)
  Sender: FDA-Public Use
  Company Number: PHHY2015TR085945

PATIENT
  Age: 42 Year
  Sex: Male

DRUGS (5)
  1. LAMOTRIGINE. [Suspect]
     Active Substance: LAMOTRIGINE
     Dosage: 25 MG, UNK
     Route: 065
  2. LAMOTRIGINE. [Suspect]
     Active Substance: LAMOTRIGINE
     Indication: DEPRESSION
     Dosage: 25 MG, UNK, AT BED TIME
     Route: 065
  3. LAMOTRIGINE. [Suspect]
     Active Substance: LAMOTRIGINE
     Dosage: 37.5 MG, QD
     Route: 065
  4. LITHIUM. [Concomitant]
     Active Substance: LITHIUM
     Indication: BIPOLAR DISORDER
     Dosage: 1200 MG, QD
     Route: 065
  5. LAMOTRIGINE. [Suspect]
     Active Substance: LAMOTRIGINE
     Dosage: 50 MG, QD
     Route: 065

REACTIONS (4)
  - Hypomania [Recovering/Resolving]
  - Insomnia [Unknown]
  - Distractibility [Recovered/Resolved]
  - Restlessness [Recovered/Resolved]
